FAERS Safety Report 7942568-4 (Version None)
Quarter: 2011Q4

REPORT INFORMATION
  Report Type: 
  Country: None (occurrence: None)
  Receive Date: 20111128
  Receipt Date: 20111117
  Transmission Date: 20120403
  Serious: Yes (Hospitalization)
  Sender: FDA-Public Use
  Company Number: IT-GLAXOSMITHKLINE-B0764855A

PATIENT
  Sex: Female

DRUGS (6)
  1. DEPAKENE [Concomitant]
     Indication: DEPRESSION
  2. DEPAKENE [Suspect]
     Indication: MULTIPLE DRUG OVERDOSE INTENTIONAL
     Dosage: 12U PER DAY
     Route: 048
     Dates: start: 20111002, end: 20111002
  3. PAROXETINE HYDROCHLORIDE [Suspect]
     Indication: MULTIPLE DRUG OVERDOSE INTENTIONAL
     Dosage: 12U PER DAY
     Route: 048
     Dates: start: 20111002, end: 20111002
  4. REMERON [Suspect]
     Indication: MULTIPLE DRUG OVERDOSE INTENTIONAL
     Dosage: 1U PER DAY
     Route: 048
     Dates: start: 20111002, end: 20111002
  5. REMERON [Concomitant]
     Indication: DEPRESSION
  6. LEVOPRAID [Concomitant]
     Indication: DEPRESSION

REACTIONS (1)
  - BRADYPHRENIA [None]
